FAERS Safety Report 5520940-X (Version None)
Quarter: 2007Q4

REPORT INFORMATION
  Report Type: 
  Country: None (occurrence: None)
  Receive Date: 20071119
  Receipt Date: 20071108
  Transmission Date: 20080405
  Serious: Yes (Hospitalization, Other)
  Sender: FDA-Public Use
  Company Number: GR-JNJFOC-20070900229

PATIENT
  Age: 30 Year
  Sex: Male
  Weight: 70 kg

DRUGS (4)
  1. REMICADE [Suspect]
     Route: 042
  2. REMICADE [Suspect]
     Indication: CROHN'S DISEASE
     Route: 042
  3. AZATHIOPRINE [Interacting]
     Indication: CROHN'S DISEASE
     Route: 048
  4. 5-ASA [Concomitant]

REACTIONS (3)
  - DRUG INEFFECTIVE [None]
  - DRUG INTERACTION [None]
  - HODGKIN'S DISEASE NODULAR SCLEROSIS STAGE UNSPECIFIED [None]
